FAERS Safety Report 6729334-2 (Version None)
Quarter: 2010Q2

REPORT INFORMATION
  Report Type: 
  Country: None (occurrence: None)
  Receive Date: 20100517
  Receipt Date: 20100510
  Transmission Date: 20101027
  Serious: No
  Sender: FDA-Public Use
  Company Number: US-ABBOTT-10P-163-0643868-00

PATIENT
  Sex: Male
  Weight: 83.536 kg

DRUGS (2)
  1. SIMCOR [Suspect]
     Indication: BLOOD CHOLESTEROL INCREASED
     Dosage: 1 - 500/20MG TAB DAILY
     Route: 048
     Dates: start: 20100425, end: 20100509
  2. VICODIN [Concomitant]
     Indication: BACK DISORDER

REACTIONS (5)
  - DYSPNOEA [None]
  - FLUSHING [None]
  - MYALGIA [None]
  - PRURITUS [None]
  - RASH MACULAR [None]
